FAERS Safety Report 20695122 (Version 1)
Quarter: 2022Q2

REPORT INFORMATION
  Report Type: Spontaneous
  Country: US (occurrence: None)
  Receive Date: 20220408
  Receipt Date: 20220408
  Transmission Date: 20220721
  Serious: Yes (Disabling)
  Sender: FDA-Public Use
  Company Number: None

PATIENT
  Age: 57 Year
  Sex: Male
  Weight: 110.25 kg

DRUGS (5)
  1. SEROQUEL [Suspect]
     Active Substance: QUETIAPINE FUMARATE
     Dosage: FREQUENCY : AT BEDTIME;?
     Route: 048
     Dates: start: 20220112
  2. ZYPREXA [Suspect]
     Active Substance: OLANZAPINE
     Indication: Psychotic disorder
     Dosage: FREQUENCY : TWICE A DAY;?
     Route: 048
     Dates: start: 20220112
  3. TESTOSTERONE [Concomitant]
     Active Substance: TESTOSTERONE
  4. PROPRANOLOL [Concomitant]
     Active Substance: PROPRANOLOL HYDROCHLORIDE
  5. Centrum multivitamin [Concomitant]

REACTIONS (1)
  - Blood testosterone decreased [None]

NARRATIVE: CASE EVENT DATE: 20220316
